FAERS Safety Report 10202686 (Version 1)
Quarter: 2014Q2

REPORT INFORMATION
  Report Type: Spontaneous
  Country: US (occurrence: US)
  Receive Date: 20140528
  Receipt Date: 20140528
  Transmission Date: 20141212
  Serious: Yes (Other)
  Sender: FDA-Public Use
  Company Number: US-TEVA-483637USA

PATIENT
  Sex: Female
  Weight: 75 kg

DRUGS (12)
  1. TRISENOX [Suspect]
     Indication: ACUTE PROMYELOCYTIC LEUKAEMIA
     Dates: start: 20140202
  2. PREDNISONE [Concomitant]
     Indication: STEROID THERAPY
  3. ZOVIRAX [Concomitant]
  4. PROTONIX [Concomitant]
     Indication: PROPHYLAXIS
  5. HYDROCHLOROTHIAZIDE [Concomitant]
     Indication: HYPERTENSION
  6. METOPROLOL [Concomitant]
     Indication: HYPERTENSION
  7. CALCIUM [Concomitant]
     Indication: MINERAL SUPPLEMENTATION
  8. POTASSIUM [Concomitant]
     Indication: MINERAL SUPPLEMENTATION
  9. SYNTHROID [Concomitant]
     Indication: HYPOTHYROIDISM
  10. ATRA [Concomitant]
     Indication: SKIN DISORDER
  11. NASONEX [Concomitant]
  12. NYSTATIN [Concomitant]

REACTIONS (3)
  - Deafness neurosensory [Not Recovered/Not Resolved]
  - Ear pain [Recovered/Resolved]
  - Ear congestion [Recovered/Resolved]
